FAERS Safety Report 12790250 (Version 1)
Quarter: 2016Q3

REPORT INFORMATION
  Report Type: Spontaneous
  Country: DK (occurrence: AU)
  Receive Date: 20160928
  Receipt Date: 20160928
  Transmission Date: 20161109
  Serious: Yes (Other)
  Sender: FDA-Public Use
  Company Number: AU-ALLERGAN-1000087634

PATIENT
  Age: 45 Year
  Sex: Male
  Weight: 100 kg

DRUGS (5)
  1. ESCITALOPRAM OXALATE UNK [Suspect]
     Active Substance: ESCITALOPRAM OXALATE
     Indication: STRESS
     Dosage: 10 MG, QD
     Route: 065
     Dates: start: 20160614
  2. ALEPAM / OXAZEPAM [Concomitant]
     Indication: INSOMNIA
     Dosage: 15 MG, UNK
     Route: 065
  3. ESCITALOPRAM OXALATE UNK [Suspect]
     Active Substance: ESCITALOPRAM OXALATE
     Indication: ANXIETY
  4. PANADOL / PARACETAMOL [Concomitant]
     Indication: HEADACHE
     Dosage: UNK
     Route: 065
  5. ESCITALOPRAM OXALATE UNK [Suspect]
     Active Substance: ESCITALOPRAM OXALATE
     Indication: DEPRESSION

REACTIONS (16)
  - Memory impairment [Recovering/Resolving]
  - Abdominal pain upper [Recovering/Resolving]
  - Yawning [Recovering/Resolving]
  - Feeling abnormal [Recovering/Resolving]
  - Confusional state [Recovering/Resolving]
  - Dizziness [Recovering/Resolving]
  - Diarrhoea [Recovering/Resolving]
  - Abdominal pain upper [None]
  - Abnormal dreams [Recovering/Resolving]
  - Muscle disorder [None]
  - Headache [Recovering/Resolving]
  - Insomnia [Recovering/Resolving]
  - Abnormal dreams [None]
  - Hyperhidrosis [Recovering/Resolving]
  - Fatigue [Recovering/Resolving]
  - Lethargy [None]
